FAERS Safety Report 14064649 (Version 1)
Quarter: 2017Q4

REPORT INFORMATION
  Report Type: Report from Study
  Country: BR (occurrence: BR)
  Receive Date: 20171009
  Receipt Date: 20171009
  Transmission Date: 20180321
  Serious: Yes (Other)
  Sender: FDA-Public Use
  Company Number: BR-JNJFOC-20171003565

PATIENT
  Age: 79 Year
  Sex: Female
  Weight: 75 kg

DRUGS (8)
  1. GLICLAZIDE [Concomitant]
     Active Substance: GLICLAZIDE
     Route: 065
  2. SIMPONI [Suspect]
     Active Substance: GOLIMUMAB
     Indication: RHEUMATOID ARTHRITIS
     Route: 058
     Dates: start: 20140910
  3. GLIFAGE [Concomitant]
     Active Substance: METFORMIN HYDROCHLORIDE
     Route: 065
  4. METHOTREXATE. [Concomitant]
     Active Substance: METHOTREXATE
     Route: 065
  5. PANTOPRAZOLE [Concomitant]
     Active Substance: PANTOPRAZOLE
     Route: 065
  6. ATENOLOL. [Concomitant]
     Active Substance: ATENOLOL
     Route: 065
  7. AAS [Concomitant]
     Active Substance: ASPIRIN
     Route: 065
  8. LEVOTHYROXINE. [Concomitant]
     Active Substance: LEVOTHYROXINE
     Route: 065

REACTIONS (4)
  - Arrhythmia [Not Recovered/Not Resolved]
  - Gait disturbance [Unknown]
  - Pain in extremity [Not Recovered/Not Resolved]
  - Lung infection [Not Recovered/Not Resolved]

NARRATIVE: CASE EVENT DATE: 201709
